FAERS Safety Report 7516858-3 (Version None)
Quarter: 2011Q2

REPORT INFORMATION
  Report Type: 
  Country: None (occurrence: None)
  Receive Date: 20110526
  Receipt Date: 20110526
  Transmission Date: 20111010
  Serious: Yes (Other)
  Sender: FDA-Public Use
  Company Number: None

PATIENT
  Sex: Male

DRUGS (2)
  1. INVEGA SUSTENNA [Suspect]
     Indication: BIPOLAR DISORDER
     Dosage: IM
     Route: 030
     Dates: start: 20110523, end: 20110523
  2. INVEGA SUSTENNA [Suspect]
     Indication: SCHIZOPHRENIA
     Dosage: IM
     Route: 030
     Dates: start: 20110523, end: 20110523

REACTIONS (8)
  - LACRIMATION INCREASED [None]
  - EYE IRRITATION [None]
  - DYSKINESIA [None]
  - FEELING ABNORMAL [None]
  - CHEST PAIN [None]
  - HYPOAESTHESIA [None]
  - BLEPHAROSPASM [None]
  - HYPOTENSION [None]
